FAERS Safety Report 9490577 (Version 1)
Quarter: 2013Q3

REPORT INFORMATION
  Report Type: Spontaneous
  Country: US (occurrence: None)
  Receive Date: 20130828
  Receipt Date: 20130828
  Transmission Date: 20140515
  Serious: No
  Sender: FDA-Public Use
  Company Number: None

PATIENT
  Age: 49 Year
  Sex: Female

DRUGS (1)
  1. CLONAZEPAM [Suspect]
     Indication: ANXIETY

REACTIONS (4)
  - Drug withdrawal syndrome [None]
  - Erectile dysfunction [None]
  - Product quality issue [None]
  - Drug effect decreased [None]
